FAERS Safety Report 4952213-8 (Version None)
Quarter: 2006Q1

REPORT INFORMATION
  Report Type: 
  Country: None (occurrence: None)
  Receive Date: 20060320
  Receipt Date: 20060302
  Transmission Date: 20060701
  Serious: Yes (Death)
  Sender: FDA-Public Use
  Company Number: 2006-00327

PATIENT
  Age: 57 Year
  Sex: 0

DRUGS (1)
  1. VELCADE [Suspect]
     Indication: NATURAL KILLER-CELL LYMPHOBLASTIC LYMPHOMA
     Dosage: 1.00 MG/M2, 2/WEEK
     Dates: start: 20051224, end: 20060104

REACTIONS (2)
  - DISEASE PROGRESSION [None]
  - NATURAL KILLER-CELL LYMPHOBLASTIC LYMPHOMA [None]
